FAERS Safety Report 7572126-5 (Version None)
Quarter: 2011Q2

REPORT INFORMATION
  Report Type: 
  Country: None (occurrence: None)
  Receive Date: 20110624
  Receipt Date: 20110617
  Transmission Date: 20111010
  Serious: Yes (Other)
  Sender: FDA-Public Use
  Company Number: FR-CEPHALON-2011002409

PATIENT
  Sex: Male
  Weight: 63 kg

DRUGS (7)
  1. VELCADE [Suspect]
     Indication: MULTIPLE MYELOMA
     Route: 042
     Dates: start: 20110223, end: 20110504
  2. BENDAMUSTINE HCL [Suspect]
     Route: 042
     Dates: start: 20110420, end: 20110504
  3. BENDAMUSTINE HCL [Suspect]
     Route: 042
     Dates: start: 20110601
  4. ARANESP [Concomitant]
     Dates: start: 20110202
  5. BENDAMUSTINE HCL [Suspect]
     Indication: MULTIPLE MYELOMA
     Route: 042
     Dates: start: 20110223
  6. DEXAMETHASONE [Suspect]
     Indication: MULTIPLE MYELOMA
     Route: 048
     Dates: start: 20110223
  7. OXYCONTIN [Concomitant]

REACTIONS (2)
  - HYPERACUSIS [None]
  - HYPOACUSIS [None]
